FAERS Safety Report 5506450-4 (Version None)
Quarter: 2007Q4

REPORT INFORMATION
  Report Type: 
  Country: None (occurrence: None)
  Receive Date: 20071101
  Receipt Date: 20071024
  Transmission Date: 20080405
  Serious: Yes (Death)
  Sender: FDA-Public Use
  Company Number: MPS1-10664

PATIENT
  Age: 15 Year
  Sex: Female
  Weight: 21 kg

DRUGS (3)
  1. ALDURAZYME [Suspect]
     Indication: MUCOPOLYSACCHARIDOSIS I
     Dosage: 14.5 MG QWK IV
     Route: 042
     Dates: start: 20040917, end: 20070302
  2. CARBOCYSTEINE [Concomitant]
  3. HYDROXYZINE PAMOATE [Concomitant]

REACTIONS (5)
  - AORTIC VALVE DISEASE [None]
  - CARDIAC FAILURE CONGESTIVE [None]
  - CARDIO-RESPIRATORY ARREST [None]
  - MITRAL VALVE DISEASE [None]
  - WHITE BLOOD CELL COUNT INCREASED [None]
